FAERS Safety Report 8367683-5 (Version None)
Quarter: 2012Q2

REPORT INFORMATION
  Report Type: 
  Country: None (occurrence: None)
  Receive Date: 20120517
  Receipt Date: 20120510
  Transmission Date: 20120825
  Serious: Yes (Other)
  Sender: FDA-Public Use
  Company Number: US-GLAXOSMITHKLINE-A0898575A

PATIENT
  Age: 70 Year
  Sex: Female

DRUGS (4)
  1. ZOCOR [Concomitant]
  2. INSULIN [Concomitant]
  3. VASOTEC [Concomitant]
  4. AVANDIA [Suspect]
     Indication: TYPE 2 DIABETES MELLITUS
     Dosage: 4MG PER DAY
     Route: 048
     Dates: start: 20040223, end: 20080802

REACTIONS (3)
  - CORONARY ARTERY DISEASE [None]
  - CARDIAC FAILURE CONGESTIVE [None]
  - ATRIAL FIBRILLATION [None]
